FAERS Safety Report 4972456-7 (Version None)
Quarter: 2006Q2

REPORT INFORMATION
  Report Type: 
  Country: None (occurrence: None)
  Receive Date: 20060413
  Receipt Date: 20050810
  Transmission Date: 20061013
  Serious: Yes (Death, Hospitalization)
  Sender: FDA-Public Use
  Company Number: US-MERCK-0508USA01977

PATIENT
  Age: 76 Year
  Sex: Female
  Weight: 118 kg

DRUGS (7)
  1. VIOXX [Suspect]
     Indication: GOUT
     Route: 048
     Dates: start: 20000601, end: 20000601
  2. VIOXX [Suspect]
     Route: 048
     Dates: start: 20000601
  3. PEPCID [Concomitant]
     Route: 048
  4. METOPROLOL [Concomitant]
     Route: 048
  5. ZOCOR [Concomitant]
     Route: 048
  6. HEPARIN [Concomitant]
     Route: 058
  7. COMPAZINE [Concomitant]
     Indication: VOMITING
     Route: 030

REACTIONS (15)
  - AMNESIA [None]
  - ASTHMA [None]
  - BLINDNESS UNILATERAL [None]
  - CARDIO-RESPIRATORY ARREST [None]
  - CELLULITIS [None]
  - CEREBRAL INFARCTION [None]
  - CEREBROVASCULAR ACCIDENT [None]
  - DEPRESSION [None]
  - GOUTY ARTHRITIS [None]
  - HYPERSENSITIVITY [None]
  - MYOCARDIAL INFARCTION [None]
  - RENAL COLIC [None]
  - RENAL DISORDER [None]
  - URETERAL DISORDER [None]
  - VISUAL ACUITY REDUCED [None]
